FAERS Safety Report 17196698 (Version 1)
Quarter: 2019Q4

REPORT INFORMATION
  Report Type: Report from Study
  Country: CA (occurrence: CA)
  Receive Date: 20191224
  Receipt Date: 20191224
  Transmission Date: 20200122
  Serious: Yes (Hospitalization)
  Sender: FDA-Public Use
  Company Number: CA-PFIZER INC-2019552232

PATIENT
  Age: 67 Year
  Sex: Male
  Weight: 82 kg

DRUGS (13)
  1. STATEX [MORPHINE SULFATE] [Concomitant]
     Active Substance: MORPHINE SULFATE
     Dosage: UNK, 1X/DAY
     Route: 065
  2. GEMCITABINE HYDROCHLORIDE. [Suspect]
     Active Substance: GEMCITABINE HYDROCHLORIDE
     Indication: BLADDER CANCER
     Dosage: 206 MG, (1 EVERY 4 WEEKS)
     Route: 042
  3. ATEZOLIZUMAB. [Suspect]
     Active Substance: ATEZOLIZUMAB
     Indication: BLADDER CANCER
     Dosage: 1200 MG, (1 EVERY 21 DAYS)
     Route: 042
  4. ULTIBRO BREEZHALER [Concomitant]
     Active Substance: GLYCOPYRRONIUM\INDACATEROL
     Dosage: UNK, 1X/DAY
     Route: 065
  5. PANTOLOC [PANTOPRAZOLE] [Concomitant]
     Active Substance: PANTOPRAZOLE SODIUM
     Dosage: 40 MG, UNK
     Route: 065
  6. SILDENAFIL. [Concomitant]
     Active Substance: SILDENAFIL
     Dosage: 50 MG, AS NEEDED
     Route: 065
  7. BRICANYL [Concomitant]
     Active Substance: TERBUTALINE SULFATE
     Dosage: 0.5 MG, AS NEEDED
     Route: 065
  8. CITALOPRAM [Concomitant]
     Active Substance: CITALOPRAM HYDROBROMIDE
     Dosage: 40 MG, UNK
     Route: 065
  9. FLOMAX [Concomitant]
     Active Substance: TAMSULOSIN HYDROCHLORIDE
     Dosage: 0.4 MG, UNK
     Route: 065
  10. CORTIFOAM [Concomitant]
     Active Substance: HYDROCORTISONE ACETATE
     Dosage: UNK, 2X/DAY
     Route: 065
  11. LOPERAMIDE [Concomitant]
     Active Substance: LOPERAMIDE
     Dosage: 2 MG, AS NEEDED
     Route: 065
  12. KADIAN [Concomitant]
     Active Substance: MORPHINE SULFATE
     Dosage: 30 MG, 1X/DAY
     Route: 065
  13. ROSUVASTATIN. [Concomitant]
     Active Substance: ROSUVASTATIN
     Dosage: 20 MG, 1X/DAY
     Route: 065

REACTIONS (4)
  - Diarrhoea [Recovered/Resolved]
  - Proctitis [Recovered/Resolved]
  - Abdominal pain [Recovered/Resolved]
  - Intestinal obstruction [Recovered/Resolved]
